FAERS Safety Report 26105075 (Version 1)
Quarter: 2025Q4

REPORT INFORMATION
  Report Type: Spontaneous
  Country: US (occurrence: US)
  Receive Date: 20251130
  Receipt Date: 20251130
  Transmission Date: 20260118
  Serious: No
  Sender: ROCHE
  Company Number: US-ROCHE-10000444322

PATIENT
  Sex: Male
  Weight: 51.26 kg

DRUGS (1)
  1. HEMLIBRA [Suspect]
     Active Substance: EMICIZUMAB-KXWH
     Indication: Factor VIII deficiency
     Dosage: 150 MG/ML
     Route: 058
     Dates: start: 202509

REACTIONS (2)
  - Off label use [Unknown]
  - No adverse event [Unknown]
